FAERS Safety Report 18735015 (Version 1)
Quarter: 2021Q1

REPORT INFORMATION
  Report Type: Other
  Country: CN (occurrence: CN)
  Receive Date: 20210113
  Receipt Date: 20210113
  Transmission Date: 20210419
  Serious: Yes (Other)
  Sender: FDA-Public Use
  Company Number: CN-ROCHE-2744585

PATIENT

DRUGS (12)
  1. BEVACIZUMAB. [Suspect]
     Active Substance: BEVACIZUMAB
     Indication: COLORECTAL CANCER
     Route: 065
  2. CETUXIMAB. [Suspect]
     Active Substance: CETUXIMAB
     Indication: COLORECTAL CANCER
     Route: 065
  3. GEMCITABINE. [Suspect]
     Active Substance: GEMCITABINE
     Indication: COLORECTAL CANCER
     Route: 065
  4. APATINIB [Suspect]
     Active Substance: APATINIB
     Indication: COLORECTAL CANCER
     Route: 065
  5. PEMETREXED. [Suspect]
     Active Substance: PEMETREXED
     Indication: COLORECTAL CANCER
     Route: 065
  6. CAPECITABINE. [Suspect]
     Active Substance: CAPECITABINE
     Indication: COLORECTAL CANCER
     Route: 048
  7. NEDAPLATIN [Suspect]
     Active Substance: NEDAPLATIN
     Indication: COLORECTAL CANCER
     Route: 065
  8. PACLITAXEL. [Suspect]
     Active Substance: PACLITAXEL
     Indication: COLORECTAL CANCER
     Route: 065
  9. TS?1 [Suspect]
     Active Substance: GIMERACIL\OTERACIL\TEGAFUR
     Indication: COLORECTAL CANCER
     Route: 065
  10. OXALIPLATIN. [Suspect]
     Active Substance: OXALIPLATIN
     Indication: COLORECTAL CANCER
     Route: 065
  11. RALTITREXED [Suspect]
     Active Substance: RALTITREXED
     Indication: COLORECTAL CANCER
     Route: 065
  12. IRINOTECAN [Suspect]
     Active Substance: IRINOTECAN
     Indication: COLORECTAL CANCER
     Route: 065

REACTIONS (21)
  - Haemorrhage [Unknown]
  - Nausea [Unknown]
  - Alanine aminotransferase increased [Unknown]
  - Mouth ulceration [Unknown]
  - Blood urea increased [Unknown]
  - Haematuria [Unknown]
  - Rash [Unknown]
  - Leukopenia [Unknown]
  - Anaemia [Unknown]
  - Thrombocytopenia [Unknown]
  - Blood bilirubin increased [Unknown]
  - Fatigue [Unknown]
  - Gene mutation [Unknown]
  - Proteinuria [Unknown]
  - Oedema [Unknown]
  - Neutropenia [Unknown]
  - Diarrhoea [Unknown]
  - Aspartate aminotransferase increased [Unknown]
  - Decreased appetite [Unknown]
  - Vomiting [Unknown]
  - Blood creatinine increased [Unknown]
